FAERS Safety Report 23858762 (Version 1)
Quarter: 2024Q2

REPORT INFORMATION
  Report Type: Spontaneous
  Country: CN (occurrence: CN)
  Receive Date: 20240515
  Receipt Date: 20240515
  Transmission Date: 20240716
  Serious: Yes (Life-Threatening, Other)
  Sender: FDA-Public Use
  Company Number: CN-FreseniusKabi-FK202407510

PATIENT
  Age: 5 Year
  Sex: Male
  Weight: 19 kg

DRUGS (5)
  1. PROPOFOL [Suspect]
     Active Substance: PROPOFOL
     Indication: General anaesthesia
     Dosage: FORM OF ADMIN - INJECTION?ROUTE OF ADMIN: PUMP INJECTION
     Route: 042
     Dates: start: 20240506, end: 20240506
  2. Esketamine Hydrochloride Injection [Concomitant]
     Indication: General anaesthesia
     Dosage: FOA - INJECTION
     Route: 042
     Dates: start: 20240506, end: 20240506
  3. KETAMINE [Concomitant]
     Active Substance: KETAMINE
     Indication: Product used for unknown indication
     Dosage: AT 08:48
     Route: 040
  4. KETAMINE [Concomitant]
     Active Substance: KETAMINE
     Dosage: AT 09:00
     Route: 040
  5. KETAMINE [Concomitant]
     Active Substance: KETAMINE
     Dosage: AT 08:26
     Route: 040

REACTIONS (1)
  - Anaphylactic shock [Recovered/Resolved]

NARRATIVE: CASE EVENT DATE: 20240506
